FAERS Safety Report 4978139-1 (Version None)
Quarter: 2006Q2

REPORT INFORMATION
  Report Type: 
  Country: None (occurrence: None)
  Receive Date: 20060417
  Receipt Date: 20060403
  Transmission Date: 20061013
  Serious: Yes (Other)
  Sender: FDA-Public Use
  Company Number: 223705

PATIENT
  Sex: Female

DRUGS (8)
  1. RAPTIVA [Suspect]
     Indication: PSORIASIS
     Dosage: 1 ML, 1/WEEK, SUBCUTANEOUS
     Route: 058
  2. HUMALOG [Concomitant]
  3. TOPROL-XL [Concomitant]
  4. LOZOL [Concomitant]
  5. PAXIL [Concomitant]
  6. AMANTADINE HCL [Concomitant]
  7. PRILOSEC [Concomitant]
  8. BLADDER CONTROL PATCH [Concomitant]

REACTIONS (1)
  - NEUTROPENIA [None]
